FAERS Safety Report 4419712-9 (Version None)
Quarter: 2004Q3

REPORT INFORMATION
  Report Type: 
  Country: None (occurrence: None)
  Receive Date: 20040805
  Receipt Date: 20040805
  Transmission Date: 20050211
  Serious: Yes (Other)
  Sender: FDA-Public Use
  Company Number: None

PATIENT
  Age: 57 Year
  Sex: Female
  Weight: 50.8029 kg

DRUGS (2)
  1. SEPTOCAINE [Suspect]
     Indication: ANAESTHESIA
     Dosage: INJECTION
     Dates: start: 20040616, end: 20040616
  2. SEPTOCAINE [Suspect]
     Indication: DENTAL OPERATION
     Dosage: INJECTION
     Dates: start: 20040616, end: 20040616

REACTIONS (4)
  - HYPOAESTHESIA ORAL [None]
  - POST PROCEDURAL COMPLICATION [None]
  - SWELLING FACE [None]
  - SWOLLEN TONGUE [None]
